FAERS Safety Report 4549604-6 (Version None)
Quarter: 2005Q1

REPORT INFORMATION
  Report Type: 
  Country: None (occurrence: None)
  Receive Date: 20050106
  Receipt Date: 20041223
  Transmission Date: 20050727
  Serious: Yes (Other)
  Sender: FDA-Public Use
  Company Number: 2004240538US

PATIENT
  Sex: Female
  Weight: 68.0396 kg

DRUGS (3)
  1. BEXTRA [Suspect]
     Indication: BURSITIS
     Dosage: ORAL
     Route: 048
     Dates: start: 20040615, end: 20040707
  2. DILTIAZEM HYDROCHLORIDE [Concomitant]
  3. ESOMEPRAZOLE (ESOMEPRAZOLE) [Concomitant]

REACTIONS (6)
  - BLINDNESS UNILATERAL [None]
  - CONDITION AGGRAVATED [None]
  - EYE DISORDER [None]
  - HYPERTENSION [None]
  - OCULAR VASCULAR DISORDER [None]
  - URINARY TRACT INFECTION [None]
